FAERS Safety Report 11128805 (Version 2)
Quarter: 2015Q2

REPORT INFORMATION
  Report Type: Spontaneous
  Country: JP (occurrence: JP)
  Receive Date: 20150521
  Receipt Date: 20150603
  Transmission Date: 20150821
  Serious: Yes (Other)
  Sender: FDA-Public Use
  Company Number: JP-GLAXOSMITHKLINE-JP2015JPN025333

PATIENT
  Age: 77 Year
  Sex: Male

DRUGS (24)
  1. LAMICTAL [Suspect]
     Active Substance: LAMOTRIGINE
     Indication: PARTIAL SEIZURES
     Dosage: 25 MG, QOD
     Route: 048
     Dates: start: 20150113, end: 20150127
  2. OLMETEC [Concomitant]
     Active Substance: OLMESARTAN MEDOXOMIL
     Indication: HYPERTENSION
     Dosage: 20 MG, BID
     Dates: start: 20120809, end: 20150513
  3. PLETAAL OD [Concomitant]
     Active Substance: CILOSTAZOL
     Indication: CEREBRAL CIRCULATORY FAILURE
  4. LAMICTAL [Suspect]
     Active Substance: LAMOTRIGINE
     Dosage: 25 MG, QD
     Route: 048
     Dates: start: 20150128, end: 20150208
  5. LAMICTAL [Suspect]
     Active Substance: LAMOTRIGINE
     Dosage: 25 MG, BID
     Route: 048
     Dates: start: 20150209, end: 20150212
  6. MENESIT [Concomitant]
     Active Substance: CARBIDOPA\LEVODOPA
     Indication: PARKINSON^S DISEASE
     Dosage: 100 MG, TID
     Dates: start: 20120807, end: 20150513
  7. PLETAAL OD [Concomitant]
     Active Substance: CILOSTAZOL
     Indication: LACUNAR INFARCTION
     Dosage: 50 MG, BID
     Dates: start: 20120809, end: 20150513
  8. KEPPRA [Concomitant]
     Active Substance: LEVETIRACETAM
     Dosage: 500 MG, BID
     Dates: start: 20150224, end: 20150308
  9. KEPPRA [Concomitant]
     Active Substance: LEVETIRACETAM
     Dosage: 250 MG, BID
     Dates: start: 20150324, end: 20150513
  10. SELENICA-R [Concomitant]
     Active Substance: SELENIUM
     Indication: PARTIAL SEIZURES
     Dosage: 400 MG, BID
     Dates: start: 20130531, end: 20140324
  11. LAMICTAL [Suspect]
     Active Substance: LAMOTRIGINE
     Dosage: 25 MG, QD
     Route: 048
     Dates: start: 20150213, end: 20150509
  12. AMOBAN [Concomitant]
     Active Substance: ZOPICLONE
     Indication: INSOMNIA
     Dosage: 3.75 MG, QD
     Dates: start: 20130517, end: 20131127
  13. PURSENNID [Concomitant]
     Active Substance: SENNOSIDES A AND B
     Indication: CONSTIPATION
     Dosage: 24 MG, QD
     Dates: start: 20120807, end: 20150513
  14. ATELEC [Concomitant]
     Active Substance: CILNIDIPINE
     Indication: HYPERTENSION
     Dosage: 5 MG, QD
     Dates: start: 20131003, end: 20140811
  15. KEPPRA [Concomitant]
     Active Substance: LEVETIRACETAM
     Indication: PARALYSIS
     Dosage: 500 MG, BID
     Dates: start: 20140325, end: 20140910
  16. AMLODIN [Concomitant]
     Active Substance: AMLODIPINE BESYLATE
     Indication: HYPERTENSION
     Dosage: 5 MG, QD
     Dates: start: 20120809, end: 20131030
  17. OPALMON [Concomitant]
     Active Substance: LIMAPROST
     Indication: LUMBAR SPINAL STENOSIS
     Dosage: 5 MG, TID
     Dates: start: 20120809, end: 20121008
  18. LAMICTAL [Suspect]
     Active Substance: LAMOTRIGINE
     Dosage: 25 MG, QD
     Route: 048
     Dates: start: 20150510
  19. LYRICA [Concomitant]
     Active Substance: PREGABALIN
     Indication: NEURALGIA
     Dosage: 25 MG, BID
     Dates: start: 20120809, end: 20150513
  20. PLAVIX [Concomitant]
     Active Substance: CLOPIDOGREL BISULFATE
     Indication: CEREBRAL INFARCTION
     Dosage: 50 MG, QD
     Dates: start: 20120809, end: 20150513
  21. KEPPRA [Concomitant]
     Active Substance: LEVETIRACETAM
     Indication: PARTIAL SEIZURES
     Dosage: 250 MG, BID
     Dates: start: 20130531, end: 20140324
  22. KEPPRA [Concomitant]
     Active Substance: LEVETIRACETAM
     Dosage: UNK UNK, BID
     Dates: start: 20140911, end: 20150223
  23. KEPPRA [Concomitant]
     Active Substance: LEVETIRACETAM
     Dosage: 1500 MG, 1D
     Dates: start: 20150309, end: 20150323
  24. SELENICA-R [Concomitant]
     Active Substance: SELENIUM
     Dosage: 400 MG, QD
     Dates: start: 20140325, end: 20150209

REACTIONS (9)
  - Loss of consciousness [Unknown]
  - Fall [Unknown]
  - Muscular weakness [Unknown]
  - Syncope [Unknown]
  - Epilepsy [Unknown]
  - Hypersomnia [Recovered/Resolved]
  - Incontinence [Unknown]
  - Fall [Unknown]
  - Somnolence [Recovering/Resolving]

NARRATIVE: CASE EVENT DATE: 20150119
